FAERS Safety Report 7138312-3 (Version None)
Quarter: 2010Q4

REPORT INFORMATION
  Report Type: 
  Country: None (occurrence: None)
  Receive Date: 20101206
  Receipt Date: 20101129
  Transmission Date: 20110411
  Serious: Yes (Hospitalization)
  Sender: FDA-Public Use
  Company Number: FR-ROCHE-744855

PATIENT
  Sex: Male

DRUGS (9)
  1. ROCEPHIN [Suspect]
     Route: 030
     Dates: start: 20101004, end: 20101022
  2. ROCEPHIN [Suspect]
     Route: 030
     Dates: start: 20101102, end: 20101103
  3. BRISTOPEN [Suspect]
     Route: 048
     Dates: start: 20101029, end: 20101029
  4. COVERSYL [Concomitant]
  5. KARDEGIC [Concomitant]
  6. GLICLAZIDE [Concomitant]
  7. CARDENSIEL [Concomitant]
  8. INSULIN [Concomitant]
  9. SIMVASTATIN [Concomitant]

REACTIONS (1)
  - ACUTE GENERALISED EXANTHEMATOUS PUSTULOSIS [None]
